FAERS Safety Report 22249739 (Version 1)
Quarter: 2023Q2

REPORT INFORMATION
  Report Type: Report from Study
  Country: US (occurrence: US)
  Receive Date: 20230425
  Receipt Date: 20230425
  Transmission Date: 20230721
  Serious: Yes (Other)
  Sender: FDA-Public Use
  Company Number: US-MYLANLABS-2023M1043802

PATIENT
  Age: 6 Year
  Sex: Female

DRUGS (4)
  1. ETOPOSIDE [Suspect]
     Active Substance: ETOPOSIDE
     Indication: Acute lymphocytic leukaemia
     Dosage: 100 MILLIGRAM/SQ. METER, CYCLE; ADMINISTERED ONCE DAILY ON DAYS 1-5 OF EACH 29-DAY CYCLE
     Route: 042
  2. METHOTREXATE [Suspect]
     Active Substance: METHOTREXATE
     Indication: Acute lymphocytic leukaemia
     Dosage: UNK, CYCLE; ADMINISTERED ONCE VIA LUMBAR PUNCTURE BETWEEN DAY -6 TO DAY 1 OF EACH 29-DAY CYCLE
     Route: 037
  3. TEMSIROLIMUS [Suspect]
     Active Substance: TEMSIROLIMUS
     Indication: Acute lymphocytic leukaemia
     Dosage: UNK UNK, CYCLE, THE STARTING DOSE OF TEMSIROLIMUS AT DOSE LEVEL 1..
     Route: 042
  4. CYCLOPHOSPHAMIDE [Suspect]
     Active Substance: CYCLOPHOSPHAMIDE
     Indication: Acute lymphocytic leukaemia
     Dosage: 440 MILLIGRAM/SQ. METER, CYCLE; ADMINISTERED ONCE DAILY ON DAYS 1-5 OF EACH 29-DAY CYCLE
     Route: 042

REACTIONS (5)
  - Pseudomonas infection [Unknown]
  - Urinary tract infection pseudomonal [Unknown]
  - Wound infection pseudomonas [Unknown]
  - Pseudomonal bacteraemia [Unknown]
  - Off label use [Unknown]
